FAERS Safety Report 5884861-5 (Version None)
Quarter: 2008Q3

REPORT INFORMATION
  Report Type: 
  Country: None (occurrence: None)
  Receive Date: 20080912
  Receipt Date: 20080905
  Transmission Date: 20090109
  Serious: Yes (Life-Threatening, Hospitalization)
  Sender: FDA-Public Use
  Company Number: WAES 0808USA02724

PATIENT
  Age: 42 Year
  Sex: Male
  Weight: 63.05 kg

DRUGS (23)
  1. TAB RALTEGRAVIE POTASSIUM [Suspect]
     Indication: HIV INFECTION
     Dosage: 400 MG BID PO
     Route: 048
     Dates: start: 20060531
  2. TAB 0518-BLINDED THERAPY UNK [Suspect]
     Indication: HIV INFECTION
     Dosage: UNK/BID/PO
     Route: 048
     Dates: start: 20050718, end: 20060531
  3. CAP SAQUINAVIR MESYLATE 200 MG [Suspect]
     Indication: HIV INFECTION
     Dosage: 200 X 5 MG/BID/PO
     Route: 048
     Dates: start: 20050718, end: 20060716
  4. CAP RITONAVIR 100 MG [Suspect]
     Indication: HIV INFECTION
     Dosage: 100 MG BID PO; 100 MD DAILY PO; 100 MG BID PO
     Route: 048
     Dates: start: 20050718, end: 20060616
  5. CAP RITONAVIR 100 MG [Suspect]
     Indication: HIV INFECTION
     Dosage: 100 MG BID PO; 100 MD DAILY PO; 100 MG BID PO
     Route: 048
     Dates: start: 20060617, end: 20070214
  6. CAP RITONAVIR 100 MG [Suspect]
     Indication: HIV INFECTION
     Dosage: 100 MG BID PO; 100 MD DAILY PO; 100 MG BID PO
     Route: 048
     Dates: start: 20070215
  7. TAB LAMIVUDINE (+) ZIDOVUDINE UNK [Suspect]
     Indication: HIV INFECTION
     Dosage: 1 TAB/BID/PO
     Route: 048
     Dates: start: 20050718, end: 20080219
  8. TENOFOVIR DISOPROXIL FUMARATE [Suspect]
     Indication: HIV INFECTION
     Dosage: 300 MG DAILY PO
     Route: 048
     Dates: start: 20050618, end: 20060616
  9. TENOFOVIR DISOPROXIL FUMARATE [Suspect]
     Indication: HIV INFECTION
     Dosage: 300 MG DAILY PO
     Route: 048
     Dates: start: 20060617, end: 20060716
  10. TAB DARUNAVIR 300 MG [Suspect]
     Indication: HIV INFECTION
     Dosage: 300 X2 MD BID PO
     Route: 048
     Dates: start: 20060717
  11. TAB EMTRICITABINE (+) TENOFOVIR DISPROXIL FUMARATE 300 MG [Suspect]
     Indication: HIV INFECTION
     Dosage: 300 MG DAILY PO
     Route: 048
     Dates: start: 20080220
  12. ALBUTEROL [Concomitant]
  13. FLUTICASONE PROPIONATE [Concomitant]
  14. IMIQUIMOD [Concomitant]
  15. KETOCONAZOLE [Concomitant]
  16. LISINOPRIL [Concomitant]
  17. LOPERAMIDE HYDROCHLORIDE [Concomitant]
  18. MOMETASONE FUROATE [Concomitant]
  19. NAPROXEN [Concomitant]
  20. SILDENAFIL CITRATE [Concomitant]
  21. SULFAMETHOXAZOLE + TRIMETHOPRIM [Concomitant]
  22. TESTOSTERONE [Concomitant]
  23. ZOLPIDEM TARTRATE [Concomitant]

REACTIONS (2)
  - CYTOMEGALOVIRUS COLITIS [None]
  - SEPSIS [None]
